FAERS Safety Report 25814278 (Version 4)
Quarter: 2025Q4

REPORT INFORMATION
  Report Type: Other
  Country: US (occurrence: US)
  Receive Date: 20250917
  Receipt Date: 20251125
  Transmission Date: 20260118
  Serious: No
  Sender: TRAVERE THERAPEUTICS
  Company Number: US-TRAVERE-2025TVT01191

PATIENT
  Age: 40 Year
  Sex: Female

DRUGS (4)
  1. FILSPARI [Suspect]
     Active Substance: SPARSENTAN
     Indication: IgA nephropathy
     Route: 048
     Dates: start: 202506
  2. FILSPARI [Suspect]
     Active Substance: SPARSENTAN
     Route: 048
     Dates: start: 20250708
  3. FILSPARI [Suspect]
     Active Substance: SPARSENTAN
     Dosage: 200MG BEFORE BREAKFAST IN THE MORNING AND ANOTHER 200MG TABLET BEFORE?DINNER
     Route: 048
     Dates: start: 20250723
  4. FILSPARI [Suspect]
     Active Substance: SPARSENTAN
     Route: 048
     Dates: start: 20251023

REACTIONS (16)
  - Headache [None]
  - Epistaxis [None]
  - Loose tooth [None]
  - Hypotension [Recovered/Resolved]
  - Mouth haemorrhage [Unknown]
  - Bone pain [Unknown]
  - Blood iron decreased [Unknown]
  - Asthenia [Unknown]
  - Vitamin D decreased [Unknown]
  - Abdominal pain [Unknown]
  - Nausea [Unknown]
  - Vomiting [Unknown]
  - Dizziness [Unknown]
  - Inflammation [Unknown]
  - Fatigue [Unknown]
  - Off label use [Unknown]

NARRATIVE: CASE EVENT DATE: 20250701
